FAERS Safety Report 16097194 (Version 1)
Quarter: 2019Q1

REPORT INFORMATION
  Report Type: Spontaneous
  Country: US (occurrence: US)
  Receive Date: 20190320
  Receipt Date: 20190320
  Transmission Date: 20190418
  Serious: No
  Sender: FDA-Public Use
  Company Number: US-HORIZON-PEN-0282-2019

PATIENT
  Age: 72 Year
  Sex: Male

DRUGS (2)
  1. ALLEGRA [Concomitant]
     Active Substance: FEXOFENADINE HYDROCHLORIDE
  2. PENNSAID [Suspect]
     Active Substance: DICLOFENAC SODIUM
     Indication: ARTHRITIS
     Dosage: 1 PACKET PER KNEE BID
     Dates: start: 20190307, end: 20190310

REACTIONS (3)
  - Insurance issue [Not Recovered/Not Resolved]
  - Breath odour [Not Recovered/Not Resolved]
  - Application site pain [Not Recovered/Not Resolved]
